FAERS Safety Report 4591069-2 (Version None)
Quarter: 2005Q1

REPORT INFORMATION
  Report Type: 
  Country: None (occurrence: None)
  Receive Date: 20050222
  Receipt Date: 20050222
  Transmission Date: 20050727
  Serious: Yes (Other)
  Sender: FDA-Public Use
  Company Number: None

PATIENT
  Age: 2 Year
  Sex: Female
  Weight: 14.9687 kg

DRUGS (1)
  1. PHENERGAN [Suspect]
     Indication: GASTROENTERITIS
     Dosage: 6.25 MG IV
     Route: 042

REACTIONS (2)
  - INFUSION RELATED REACTION [None]
  - RASH [None]
